FAERS Safety Report 5990586-8 (Version None)
Quarter: 2008Q4

REPORT INFORMATION
  Report Type: 
  Country: None (occurrence: None)
  Receive Date: 20081211
  Receipt Date: 20081205
  Transmission Date: 20090506
  Serious: Yes (Hospitalization)
  Sender: FDA-Public Use
  Company Number: A0698894A

PATIENT
  Age: 46 Year
  Sex: Male
  Weight: 136.4 kg

DRUGS (1)
  1. AVANDIA [Suspect]
     Route: 065

REACTIONS (5)
  - ANXIETY [None]
  - CARDIAC FAILURE CONGESTIVE [None]
  - CARDIOMYOPATHY [None]
  - MYOCARDIAL INFARCTION [None]
  - PAIN [None]
